FAERS Safety Report 8758928 (Version 1)
Quarter: 2012Q4

REPORT INFORMATION
  Report Type: 
  Country: US (occurrence: US)
  Receive Date: 20120829
  Receipt Date: 20120829
  Transmission Date: 20130627
  Serious: No
  Sender: FDA-Public Use
  Company Number: US-JNJFOC-20120803475

PATIENT
  Age: 30 Year
  Sex: Male

DRUGS (6)
  1. INVEGA SUSTENNA [Suspect]
     Indication: PRODUCT USED FOR UNKNOWN INDICATION
     Route: 030
     Dates: start: 20120802
  2. IBUPROFEN [Concomitant]
     Route: 048
  3. RISPERDAL [Concomitant]
     Route: 048
  4. RISPERDAL [Concomitant]
     Route: 048
  5. ZYPREXA [Concomitant]
     Route: 048
  6. MAALOX [Concomitant]
     Route: 048

REACTIONS (1)
  - Drug dose omission [Unknown]
